FAERS Safety Report 14448719 (Version 2)
Quarter: 2018Q3

REPORT INFORMATION
  Report Type: Spontaneous
  Country: US (occurrence: US)
  Receive Date: 20180126
  Receipt Date: 20180917
  Transmission Date: 20181010
  Serious: Yes (Hospitalization, Other)
  Sender: FDA-Public Use
  Company Number: US-DSJP-DSU-2017-146685

PATIENT

DRUGS (7)
  1. BENICAR HCT [Suspect]
     Active Substance: HYDROCHLOROTHIAZIDE\OLMESARTAN MEDOXOMIL
     Dosage: 40?25 MG, QD
     Route: 048
     Dates: end: 20131030
  2. BENICAR [Suspect]
     Active Substance: OLMESARTAN MEDOXOMIL
     Dosage: 20 MG, UNK
     Dates: start: 20110301, end: 20150913
  3. TRIBENZOR [Suspect]
     Active Substance: AMLODIPINE BESYLATE\HYDROCHLOROTHIAZIDE\OLMESARTAN MEDOXOMIL
     Indication: HYPERTENSION
     Dosage: 40/10/25 MG, QD
     Route: 048
     Dates: start: 20110301, end: 20150913
  4. BENICAR HCT [Suspect]
     Active Substance: HYDROCHLOROTHIAZIDE\OLMESARTAN MEDOXOMIL
     Indication: HYPERTENSION
     Dosage: 40?12.5 MG, QD
     Dates: start: 20131030, end: 20150913
  5. BENICAR HCT [Suspect]
     Active Substance: HYDROCHLOROTHIAZIDE\OLMESARTAN MEDOXOMIL
     Dosage: 20?12.5 MG, QD
     Route: 048
     Dates: end: 20131030
  6. BENICAR [Suspect]
     Active Substance: OLMESARTAN MEDOXOMIL
     Indication: HYPERTENSION
     Dosage: 40 MG, UNK
  7. TRIBENZOR [Suspect]
     Active Substance: AMLODIPINE BESYLATE\HYDROCHLOROTHIAZIDE\OLMESARTAN MEDOXOMIL
     Dosage: 20?5?12.5, UNK
     Route: 048

REACTIONS (14)
  - Large intestinal ulcer [Unknown]
  - Acute kidney injury [Recovered/Resolved]
  - Large intestine polyp [Recovering/Resolving]
  - Diverticulum [Unknown]
  - Orthostatic hypotension [Unknown]
  - Intestinal obstruction [Unknown]
  - Weight decreased [Unknown]
  - Diverticulitis [Recovering/Resolving]
  - Colitis [Not Recovered/Not Resolved]
  - Vertigo [Unknown]
  - Gastrointestinal inflammation [Unknown]
  - Diverticulitis intestinal haemorrhagic [Unknown]
  - Hypokalaemia [Not Recovered/Not Resolved]
  - Gastritis [Unknown]

NARRATIVE: CASE EVENT DATE: 20111227
